FAERS Safety Report 14227287 (Version 2)
Quarter: 2017Q4

REPORT INFORMATION
  Report Type: Spontaneous
  Country: US (occurrence: US)
  Receive Date: 20171127
  Receipt Date: 20171204
  Transmission Date: 20180321
  Serious: Yes (Other)
  Sender: FDA-Public Use
  Company Number: US-PFIZER INC-2017081914

PATIENT
  Age: 43 Year
  Sex: Male
  Weight: 80.73 kg

DRUGS (5)
  1. LITHIUM. [Concomitant]
     Active Substance: LITHIUM
     Indication: BIPOLAR DISORDER
     Dosage: 450 MG, 2X/DAY
  2. HEARTBURN RELIEF [Concomitant]
     Indication: DYSPEPSIA
     Dosage: 450 MG, DAILY [150MG, TWO IN THE MORNING AND ONE AT NIGHT]
  3. LYRICA [Suspect]
     Active Substance: PREGABALIN
     Indication: LIMB OPERATION
     Dosage: UNK
     Route: 048
     Dates: end: 201710
  4. LYRICA [Suspect]
     Active Substance: PREGABALIN
     Indication: PAIN
     Dosage: 150 MG, 2X/DAY
     Route: 048
  5. EXCEDRIN [Concomitant]
     Active Substance: ACETAMINOPHEN\ASPIRIN\CAFFEINE
     Indication: PAIN
     Dosage: UNK, 3X/DAY (AS NEEDED)

REACTIONS (9)
  - Pain [Not Recovered/Not Resolved]
  - Product use in unapproved indication [Unknown]
  - Malaise [Unknown]
  - Weight decreased [Not Recovered/Not Resolved]
  - Arthralgia [Unknown]
  - Back disorder [Unknown]
  - Musculoskeletal discomfort [Unknown]
  - Intentional product misuse [Unknown]
  - Anger [Not Recovered/Not Resolved]
